FAERS Safety Report 10083600 (Version 3)
Quarter: 2014Q2

REPORT INFORMATION
  Report Type: Spontaneous
  Country: US (occurrence: US)
  Receive Date: 20140417
  Receipt Date: 20140424
  Transmission Date: 20141212
  Serious: Yes (Disabling)
  Sender: FDA-Public Use
  Company Number: US-JNJFOC-20140303716

PATIENT
  Sex: Male

DRUGS (10)
  1. XARELTO [Suspect]
     Indication: HIP ARTHROPLASTY
     Route: 048
  2. XARELTO [Suspect]
     Indication: THROMBOSIS PROPHYLAXIS
     Route: 048
  3. XARELTO [Suspect]
     Indication: HIP SURGERY
     Route: 048
  4. PERCOCET [Concomitant]
     Route: 065
  5. VICODIN [Concomitant]
     Dosage: 10/325
     Route: 065
  6. AMBIEN [Concomitant]
     Indication: INSOMNIA
     Route: 065
  7. LISINOPRIL [Concomitant]
     Indication: HYPERTENSION
     Route: 065
  8. LOVASTATIN [Concomitant]
     Route: 065
  9. NEXIUM [Concomitant]
     Route: 065
  10. ZYRTEC [Concomitant]
     Route: 065

REACTIONS (1)
  - Hiccups [Unknown]
